FAERS Safety Report 12991530 (Version 2)
Quarter: 2017Q1

REPORT INFORMATION
  Report Type: Other
  Country: FR (occurrence: FR)
  Receive Date: 20161201
  Receipt Date: 20170104
  Transmission Date: 20170428
  Serious: Yes (Life-Threatening, Other)
  Sender: FDA-Public Use
  Company Number: FR-TELIGENT, INC-IGIL20160321

PATIENT
  Age: 78 Year
  Sex: Female

DRUGS (15)
  1. IOMERON [Suspect]
     Active Substance: IOMEPROL
     Indication: COMPUTERISED TOMOGRAM
     Route: 042
     Dates: start: 20161020, end: 20161020
  2. SIMVASTATIN. [Concomitant]
     Active Substance: SIMVASTATIN
     Indication: PRODUCT USED FOR UNKNOWN INDICATION
     Route: 065
  3. ALLOPURINOL. [Concomitant]
     Active Substance: ALLOPURINOL
     Indication: PRODUCT USED FOR UNKNOWN INDICATION
     Route: 065
  4. PARACETAMOL [Concomitant]
     Active Substance: ACETAMINOPHEN
     Indication: PRODUCT USED FOR UNKNOWN INDICATION
     Route: 065
  5. LASILIX RETARD [Concomitant]
     Active Substance: FUROSEMIDE
     Indication: PRODUCT USED FOR UNKNOWN INDICATION
     Route: 065
  6. TRAMADOL HYDROCHLORIDE. [Concomitant]
     Active Substance: TRAMADOL HYDROCHLORIDE
     Indication: PRODUCT USED FOR UNKNOWN INDICATION
     Route: 065
  7. RIFADINE [Suspect]
     Active Substance: RIFAMPIN
     Indication: DEVICE RELATED INFECTION
     Route: 042
     Dates: start: 20160918, end: 20161016
  8. GENTAMICIN. [Suspect]
     Active Substance: GENTAMICIN
     Indication: DEVICE RELATED INFECTION
     Route: 042
     Dates: start: 20161016, end: 20161016
  9. CORDARONE [Concomitant]
     Active Substance: AMIODARONE HYDROCHLORIDE
     Indication: PRODUCT USED FOR UNKNOWN INDICATION
     Route: 065
  10. ELIQUIS [Concomitant]
     Active Substance: APIXABAN
     Indication: PRODUCT USED FOR UNKNOWN INDICATION
     Route: 065
  11. LASILIX [Concomitant]
     Active Substance: FUROSEMIDE
     Indication: PRODUCT USED FOR UNKNOWN INDICATION
     Route: 065
  12. LEVOTHYROX [Concomitant]
     Active Substance: LEVOTHYROXINE
     Indication: PRODUCT USED FOR UNKNOWN INDICATION
     Route: 065
  13. CEFTAZIDIME. [Suspect]
     Active Substance: CEFTAZIDIME
     Indication: DEVICE RELATED INFECTION
     Route: 042
     Dates: start: 20161016, end: 20161016
  14. NEBIVOLOL. [Concomitant]
     Active Substance: NEBIVOLOL
     Indication: PRODUCT USED FOR UNKNOWN INDICATION
     Route: 065
  15. VANCOMYCIN [Suspect]
     Active Substance: VANCOMYCIN
     Indication: DEVICE RELATED INFECTION
     Route: 042
     Dates: start: 20160918, end: 20161016

REACTIONS (27)
  - Hypovolaemia [Recovered/Resolved]
  - Anaemia [Not Recovered/Not Resolved]
  - Face oedema [Recovering/Resolving]
  - Skin exfoliation [Not Recovered/Not Resolved]
  - Oedema peripheral [Not Recovered/Not Resolved]
  - Purpura [Not Recovered/Not Resolved]
  - Rash maculo-papular [Not Recovered/Not Resolved]
  - Blister [Recovering/Resolving]
  - Eosinophilia [Recovering/Resolving]
  - Skin lesion [Not Recovered/Not Resolved]
  - Thrombocytopenia [Unknown]
  - Nervous system disorder [Not Recovered/Not Resolved]
  - Erythema [Recovering/Resolving]
  - Generalised erythema [Not Recovered/Not Resolved]
  - Skin disorder [Recovering/Resolving]
  - Oliguria [Recovered/Resolved]
  - Drug reaction with eosinophilia and systemic symptoms [Recovering/Resolving]
  - Toxic skin eruption [Recovering/Resolving]
  - Meningoencephalitis herpetic [Unknown]
  - Thrombophlebitis [Unknown]
  - Inflammation [Recovering/Resolving]
  - Metabolic encephalopathy [Recovering/Resolving]
  - Rash [Recovering/Resolving]
  - Hypotension [Recovered/Resolved]
  - Acute kidney injury [Recovered/Resolved]
  - Lymphocytosis [Unknown]
  - Confusional state [Recovering/Resolving]

NARRATIVE: CASE EVENT DATE: 201610
